FAERS Safety Report 10003621 (Version 4)
Quarter: 2014Q2

REPORT INFORMATION
  Report Type: Spontaneous
  Country: JP (occurrence: JP)
  Receive Date: 20140312
  Receipt Date: 20140408
  Transmission Date: 20141212
  Serious: Yes (Hospitalization)
  Sender: FDA-Public Use
  Company Number: JP-PFIZER INC-2014063709

PATIENT
  Age: 78 Year
  Sex: Male

DRUGS (3)
  1. SELARA [Suspect]
     Indication: OEDEMA
     Dosage: UNK
     Route: 048
     Dates: start: 2011
  2. SELARA [Suspect]
     Indication: HYPOKALAEMIA
  3. LEUPRORELIN [Suspect]
     Indication: PROSTATE CANCER
     Dosage: UNK
     Dates: start: 2005

REACTIONS (2)
  - Fibroadenoma of breast [Unknown]
  - Off label use [Unknown]
